FAERS Safety Report 23314144 (Version 1)
Quarter: 2023Q4

REPORT INFORMATION
  Report Type: Spontaneous
  Country: CA (occurrence: CA)
  Receive Date: 20231219
  Receipt Date: 20231219
  Transmission Date: 20240110
  Serious: Yes (Other)
  Sender: FDA-Public Use
  Company Number: CA-FreseniusKabi-FK202320460

PATIENT
  Sex: Male

DRUGS (3)
  1. HYDROMORPHONE HYDROCHLORIDE [Suspect]
     Active Substance: HYDROMORPHONE HYDROCHLORIDE
     Indication: Product used for unknown indication
     Dosage: ROA: UNKNOWN
  2. OXYCODONE HYDROCHLORIDE [Suspect]
     Active Substance: OXYCODONE HYDROCHLORIDE
     Indication: Product used for unknown indication
     Dosage: DOSAGE FORM: TABLET?ROA: ORAL
  3. DILAUDID [Suspect]
     Active Substance: HYDROMORPHONE HYDROCHLORIDE
     Indication: Product used for unknown indication
     Dosage: DOSAGE FORM: NOT SPECIFIED?ROA: ORAL

REACTIONS (6)
  - Drug dependence [Unknown]
  - Emotional distress [Unknown]
  - General physical health deterioration [Unknown]
  - Impaired work ability [Unknown]
  - Mental disorder [Unknown]
  - Overdose [Unknown]
